FAERS Safety Report 4990949-3 (Version None)
Quarter: 2006Q2

REPORT INFORMATION
  Report Type: 
  Country: None (occurrence: None)
  Receive Date: 20060503
  Receipt Date: 20051019
  Transmission Date: 20061013
  Serious: Yes (Hospitalization, Other)
  Sender: FDA-Public Use
  Company Number: US-MERCK-0510USA08121

PATIENT
  Age: 42 Year
  Sex: Female
  Weight: 53 kg

DRUGS (1)
  1. VIOXX [Suspect]
     Indication: BACK PAIN
     Route: 048
     Dates: start: 20000101, end: 20040601

REACTIONS (5)
  - CARDIAC DISORDER [None]
  - DEPRESSION [None]
  - MYOCARDIAL INFARCTION [None]
  - POST-TRAUMATIC STRESS DISORDER [None]
  - SPINAL DISORDER [None]
